FAERS Safety Report 13665007 (Version 1)
Quarter: 2017Q2

REPORT INFORMATION
  Report Type: Spontaneous
  Country: US (occurrence: US)
  Receive Date: 20170619
  Receipt Date: 20170619
  Transmission Date: 20170830
  Serious: Yes (Death)
  Sender: FDA-Public Use
  Company Number: US-BAYER-2017-109888

PATIENT
  Sex: Female

DRUGS (1)
  1. ALKA-SELTZER PLUS COLD SPARKLING ORIGINAL [Suspect]
     Active Substance: ASPIRIN\CHLORPHENIRAMINE MALEATE\PHENYLEPHRINE BITARTRATE
     Dosage: UNK
     Route: 065

REACTIONS (1)
  - Cardiac disorder [Fatal]
